FAERS Safety Report 12109078 (Version 1)
Quarter: 2016Q1

REPORT INFORMATION
  Report Type: Spontaneous
  Country: US (occurrence: None)
  Receive Date: 20160222
  Receipt Date: 20160222
  Transmission Date: 20160526
  Serious: Yes (Hospitalization)
  Sender: FDA-Public Use
  Company Number: None

PATIENT
  Age: 24 Year
  Sex: Female
  Weight: 65.32 kg

DRUGS (6)
  1. CIMZIA [Suspect]
     Active Substance: CERTOLIZUMAB PEGOL
     Indication: RHEUMATOID ARTHRITIS
     Route: 058
  2. COREG [Concomitant]
     Active Substance: CARVEDILOL
  3. PLAQUENIL [Concomitant]
     Active Substance: HYDROXYCHLOROQUINE SULFATE
  4. PREDNISONE. [Concomitant]
     Active Substance: PREDNISONE
  5. XANAX [Concomitant]
     Active Substance: ALPRAZOLAM
  6. HEMAX [Concomitant]

REACTIONS (3)
  - Skin reaction [None]
  - Injection site inflammation [None]
  - Injection site pain [None]

NARRATIVE: CASE EVENT DATE: 20151026
